FAERS Safety Report 19672720 (Version 1)
Quarter: 2021Q3

REPORT INFORMATION
  Report Type: Spontaneous
  Country: US (occurrence: US)
  Receive Date: 20210809
  Receipt Date: 20210809
  Transmission Date: 20211014
  Serious: Yes (Other)
  Sender: FDA-Public Use
  Company Number: US-TEVA-2021-US-1939706

PATIENT
  Weight: 2.07 kg

DRUGS (8)
  1. OXYCODONE [Suspect]
     Active Substance: OXYCODONE
     Route: 064
  2. LORTAB [Suspect]
     Active Substance: ACETAMINOPHEN\HYDROCODONE BITARTRATE
     Route: 064
  3. SUBOXONE [Suspect]
     Active Substance: BUPRENORPHINE HYDROCHLORIDE\NALOXONE HYDROCHLORIDE
     Route: 064
  4. NUCYNTA [Suspect]
     Active Substance: TAPENTADOL HYDROCHLORIDE
     Route: 064
  5. ENDOCET [Suspect]
     Active Substance: ACETAMINOPHEN\OXYCODONE HYDROCHLORIDE
     Route: 064
  6. SUBUTEX [Suspect]
     Active Substance: BUPRENORPHINE HYDROCHLORIDE
     Route: 064
  7. HYDROCODONE [Suspect]
     Active Substance: HYDROCODONE
     Route: 064
  8. PERCOCET [Suspect]
     Active Substance: ACETAMINOPHEN\OXYCODONE HYDROCHLORIDE
     Route: 064

REACTIONS (15)
  - Pain [Unknown]
  - Gastrooesophageal reflux disease [Unknown]
  - Attention deficit hyperactivity disorder [Unknown]
  - Eating disorder [Unknown]
  - Premature baby [Unknown]
  - Foetal exposure during pregnancy [Unknown]
  - Tremor [Unknown]
  - Developmental delay [Unknown]
  - Disturbance in attention [Unknown]
  - Drug withdrawal syndrome neonatal [Unknown]
  - Low birth weight baby [Unknown]
  - Visual impairment [Unknown]
  - Dysphagia [Unknown]
  - Musculoskeletal stiffness [Unknown]
  - Weight gain poor [Unknown]
